FAERS Safety Report 9484224 (Version 1)
Quarter: 2013Q3

REPORT INFORMATION
  Report Type: Spontaneous
  Country: None (occurrence: US)
  Receive Date: 20130828
  Receipt Date: 20130828
  Transmission Date: 20140515
  Serious: Yes (Hospitalization, Other)
  Sender: FDA-Public Use
  Company Number: US-AMGEN-KDL394213

PATIENT
  Age: 38 Year
  Sex: Female

DRUGS (3)
  1. ENBREL [Suspect]
     Indication: RHEUMATOID ARTHRITIS
     Dosage: 50 MG, QWK
     Route: 058
     Dates: start: 20050201
  2. METHOTREXATE [Concomitant]
     Dosage: 2.5 MG, 3 TIMES/WK
     Route: 048
  3. UNSPECIFIED MEDICATION [Concomitant]

REACTIONS (8)
  - Jaw disorder [Recovered/Resolved]
  - Mass [Recovered/Resolved]
  - Aspergillus infection [Recovered/Resolved]
  - Convulsion [Unknown]
  - Rheumatoid arthritis [Not Recovered/Not Resolved]
  - Headache [Recovered/Resolved]
  - Sensation of pressure [Recovered/Resolved]
  - Fatigue [Recovered/Resolved]
